FAERS Safety Report 18526571 (Version 1)
Quarter: 2020Q4

REPORT INFORMATION
  Report Type: Report from Study
  Country: US (occurrence: US)
  Receive Date: 20201120
  Receipt Date: 20201120
  Transmission Date: 20210114
  Serious: Yes (Hospitalization)
  Sender: FDA-Public Use
  Company Number: US-KARYOPHARM-2017KPT000011

PATIENT
  Age: 66 Year
  Sex: Female
  Weight: 78.5 kg

DRUGS (4)
  1. CARBOPLATIN. [Suspect]
     Active Substance: CARBOPLATIN
     Indication: ENDOMETRIAL CANCER
     Dosage: 5 AUC, SINGLE
     Dates: start: 20161130
  2. COMPAZINE                          /00013302/ [Concomitant]
     Active Substance: PROCHLORPERAZINE EDISYLATE
     Indication: PRODUCT USED FOR UNKNOWN INDICATION
     Dosage: UNK
     Dates: end: 20161214
  3. SELINEXOR [Suspect]
     Active Substance: SELINEXOR
     Indication: ENDOMETRIAL CANCER
     Dosage: 60 MG, WEEKLY
     Route: 048
     Dates: start: 20161130, end: 20161214
  4. PACLITAXEL. [Suspect]
     Active Substance: PACLITAXEL
     Indication: ENDOMETRIAL CANCER
     Dosage: 135 MG/M2, DAY 1
     Dates: start: 20161130

REACTIONS (1)
  - Syncope [Recovered/Resolved]

NARRATIVE: CASE EVENT DATE: 20161219
